FAERS Safety Report 17786354 (Version 1)
Quarter: 2020Q2

REPORT INFORMATION
  Report Type: Spontaneous
  Country: RO (occurrence: RO)
  Receive Date: 20200514
  Receipt Date: 20200514
  Transmission Date: 20200714
  Serious: Yes (Other)
  Sender: FDA-Public Use
  Company Number: NVSC2020RO130082

PATIENT
  Sex: Female

DRUGS (4)
  1. DOCETAXEL. [Suspect]
     Active Substance: DOCETAXEL
     Indication: BREAST CANCER STAGE II
     Dosage: 4 CURES, ONE CURE AT 21 DAYS
     Route: 065
     Dates: start: 201908
  2. ENDOXAN [Suspect]
     Active Substance: CYCLOPHOSPHAMIDE
     Indication: BREAST CANCER STAGE II
     Dosage: 4 CURES, ONE CURE AT 21 DAYS
     Route: 065
     Dates: start: 201908
  3. FLUOROURACIL. [Suspect]
     Active Substance: FLUOROURACIL
     Indication: BREAST CANCER STAGE II
     Dosage: 4 CURES, ONE CURE AT 21 DAYS
     Route: 065
     Dates: start: 201908
  4. AROMASIN [Suspect]
     Active Substance: EXEMESTANE
     Indication: BREAST CANCER
     Dosage: 25 MG, QD (ADJUVANT THERAPY)
     Route: 065
     Dates: start: 201702, end: 201908

REACTIONS (1)
  - Metastases to liver [Unknown]
